FAERS Safety Report 8332096-9 (Version None)
Quarter: 2012Q2

REPORT INFORMATION
  Report Type: 
  Country: None (occurrence: None)
  Receive Date: 20120502
  Receipt Date: 20120426
  Transmission Date: 20120825
  Serious: Yes (Hospitalization, Other)
  Sender: FDA-Public Use
  Company Number: AU-ELI_LILLY_AND_COMPANY-AU201201006606

PATIENT
  Sex: Male

DRUGS (2)
  1. BYETTA [Suspect]
     Dosage: 10 UG, BID
  2. BYETTA [Suspect]
     Dosage: 5 UG, UNKNOWN

REACTIONS (2)
  - IMPAIRED HEALING [None]
  - VASCULAR GRAFT [None]
